FAERS Safety Report 22634773 (Version 4)
Quarter: 2023Q4

REPORT INFORMATION
  Report Type: Report from Study
  Country: CN (occurrence: CN)
  Receive Date: 20230623
  Receipt Date: 20231124
  Transmission Date: 20240110
  Serious: Yes (Death, Life-Threatening, Hospitalization)
  Sender: FDA-Public Use
  Company Number: CN-SA-SAC20230621000304

PATIENT
  Age: 78 Year
  Sex: Female
  Weight: 45 kg

DRUGS (35)
  1. ISATUXIMAB [Suspect]
     Active Substance: ISATUXIMAB
     Indication: Plasma cell myeloma
     Dosage: 480 MG (INTENDED DOSE:10 MG/KG, AT INFUSION RATE OF 25, 50, 75, 100,125,150
     Route: 042
     Dates: start: 20230509, end: 20230509
  2. ISATUXIMAB [Suspect]
     Active Substance: ISATUXIMAB
     Dosage: 460 MG (INTENDED DOSE: 10 MG/KG,
     Route: 042
     Dates: start: 20230606, end: 20230606
  3. POMALIDOMIDE [Suspect]
     Active Substance: POMALIDOMIDE
     Indication: Plasma cell myeloma
     Dosage: 4 MG
     Route: 048
     Dates: start: 20230509, end: 20230509
  4. POMALIDOMIDE [Suspect]
     Active Substance: POMALIDOMIDE
     Dosage: 4 MG
     Route: 048
     Dates: start: 20230510, end: 20230510
  5. DEXAMETHASONE [Suspect]
     Active Substance: DEXAMETHASONE
     Indication: Plasma cell myeloma
     Dosage: 40 MG
     Route: 042
     Dates: start: 20230509
  6. DEXAMETHASONE [Suspect]
     Active Substance: DEXAMETHASONE
     Dosage: 40 MG
     Route: 042
     Dates: start: 20230606, end: 20230606
  7. THROMBOPOIETIN [Concomitant]
     Active Substance: THROMBOPOIETIN
     Dosage: UNK
     Route: 058
     Dates: start: 20230510
  8. ENTERAL NUTRITIONAL POWDER (TP) [Concomitant]
     Indication: Prophylaxis
     Dosage: UNK
     Route: 048
     Dates: start: 20230426
  9. ONDANSETRON HYDROCHLORIDE [Concomitant]
     Active Substance: ONDANSETRON HYDROCHLORIDE
     Dosage: 4 MG, PRN
     Route: 048
     Dates: start: 20230513
  10. AVATROMBOPAG [Concomitant]
     Active Substance: AVATROMBOPAG
     Dosage: UNK
     Route: 042
     Dates: start: 20230521, end: 20230609
  11. GLUTATHIONE [Concomitant]
     Active Substance: GLUTATHIONE
     Dosage: UNK
     Route: 042
     Dates: start: 20230530, end: 20230609
  12. FEBUXOSTAT [Concomitant]
     Active Substance: FEBUXOSTAT
     Dosage: UNK
     Route: 048
     Dates: start: 20230602
  13. DEXAMETHASONE SODIUM PHOSPHATE [Concomitant]
     Active Substance: DEXAMETHASONE SODIUM PHOSPHATE
     Indication: Prophylaxis
     Dosage: UNK
     Route: 042
     Dates: start: 20230603, end: 20230603
  14. DEXAMETHASONE SODIUM PHOSPHATE [Concomitant]
     Active Substance: DEXAMETHASONE SODIUM PHOSPHATE
     Dosage: UNK
     Route: 042
     Dates: start: 20230608, end: 20230608
  15. PANTOPRAZOLE SODIUM [Concomitant]
     Active Substance: PANTOPRAZOLE SODIUM
     Indication: Prophylaxis
     Dosage: UNK
     Route: 048
     Dates: start: 20230603, end: 20230603
  16. PANTOPRAZOLE SODIUM [Concomitant]
     Active Substance: PANTOPRAZOLE SODIUM
     Dosage: UNK
     Route: 048
     Dates: start: 20230523, end: 20230523
  17. PANTOPRAZOLE SODIUM [Concomitant]
     Active Substance: PANTOPRAZOLE SODIUM
     Dosage: UNK
     Route: 048
     Dates: start: 20230530, end: 20230530
  18. SODIUM BICARBONATE [Concomitant]
     Active Substance: SODIUM BICARBONATE
     Dosage: UNK
     Route: 041
     Dates: start: 20230603, end: 20230607
  19. SODIUM BICARBONATE [Concomitant]
     Active Substance: SODIUM BICARBONATE
     Dosage: UNK
     Route: 041
     Dates: start: 20230607, end: 20230607
  20. LIDOCAINE HYDROCHLORIDE [Concomitant]
     Active Substance: DEXTROSE MONOHYDRATE\EPINEPHRINE\EPINEPHRINE BITARTRATE\LIDOCAINE\LIDOCAINE HYDROCHLORIDE\LIDOCAINE
     Dosage: UNK
     Route: 058
     Dates: start: 20230606, end: 20230606
  21. LIDOCAINE HYDROCHLORIDE [Concomitant]
     Active Substance: DEXTROSE MONOHYDRATE\EPINEPHRINE\EPINEPHRINE BITARTRATE\LIDOCAINE\LIDOCAINE HYDROCHLORIDE\LIDOCAINE
     Dosage: 5 ML
     Route: 058
     Dates: start: 20230509, end: 20230509
  22. ACETAMINOPHEN [Concomitant]
     Active Substance: ACETAMINOPHEN
     Indication: Prophylaxis
     Dosage: UNK
     Route: 048
     Dates: start: 20230523, end: 20230523
  23. ACETAMINOPHEN [Concomitant]
     Active Substance: ACETAMINOPHEN
     Dosage: UN
     Route: 048
     Dates: start: 20230530, end: 20230530
  24. MONTELUKAST SODIUM AND LEVOCETIRIZINE DIHYDROCHLORIDE [Concomitant]
     Indication: Prophylaxis
     Dosage: UNK
     Route: 048
     Dates: start: 20230523, end: 20230523
  25. MONTELUKAST SODIUM AND LEVOCETIRIZINE DIHYDROCHLORIDE [Concomitant]
     Dosage: UNK
     Route: 048
     Dates: start: 20230530, end: 20230530
  26. DIPHENHYDRAMINE HYDROCHLORIDE [Concomitant]
     Active Substance: DIPHENHYDRAMINE HYDROCHLORIDE
     Indication: Prophylaxis
     Dosage: UNK
     Route: 030
     Dates: start: 20230523, end: 20230523
  27. DIPHENHYDRAMINE HYDROCHLORIDE [Concomitant]
     Active Substance: DIPHENHYDRAMINE HYDROCHLORIDE
     Dosage: UNK
     Route: 030
     Dates: start: 20230530, end: 20230530
  28. PANTOPRAZOLE SODIUM ANHYDROUS [Concomitant]
     Active Substance: PANTOPRAZOLE SODIUM ANHYDROUS
     Indication: Prophylaxis
     Dosage: UNK
     Route: 048
     Dates: start: 20230606, end: 20230606
  29. PLATELETS [Concomitant]
     Active Substance: HUMAN PLATELET, ALLOGENIC
     Dosage: UNK
     Route: 041
     Dates: start: 20230603, end: 20230603
  30. PLATELETS [Concomitant]
     Active Substance: HUMAN PLATELET, ALLOGENIC
     Dosage: UNK
     Route: 041
     Dates: start: 20230608, end: 20230608
  31. PLATELETS [Concomitant]
     Active Substance: HUMAN PLATELET, ALLOGENIC
     Dosage: UNK
     Route: 041
     Dates: start: 20230531, end: 20230531
  32. OXYGEN [Concomitant]
     Active Substance: OXYGEN
     Indication: Prophylaxis
     Dosage: UNK
     Route: 055
     Dates: start: 20230530, end: 20230609
  33. HEMOCOAGULASE BOTHROPS ATROX [Concomitant]
     Indication: Prophylaxis
     Dosage: UNK
     Route: 042
     Dates: start: 20230531, end: 20230602
  34. GRANULOCYTE COLONY-STIMULATING FACTOR NOS [Concomitant]
     Active Substance: GRANULOCYTE COLONY-STIMULATING FACTOR NOS
     Dosage: UNK
     Route: 058
     Dates: start: 20230530, end: 20230601
  35. HUMAN RED BLOOD CELL [Concomitant]
     Active Substance: HUMAN RED BLOOD CELL
     Indication: Prophylaxis
     Dosage: UNK
     Route: 042
     Dates: start: 20230606, end: 20230606

REACTIONS (3)
  - Death [Fatal]
  - Confusional state [Not Recovered/Not Resolved]
  - Upper gastrointestinal haemorrhage [Not Recovered/Not Resolved]

NARRATIVE: CASE EVENT DATE: 20230601
